FAERS Safety Report 5182483-5 (Version None)
Quarter: 2006Q4

REPORT INFORMATION
  Report Type: 
  Country: None (occurrence: None)
  Receive Date: 20061220
  Receipt Date: 20061002
  Transmission Date: 20070319
  Serious: No
  Sender: FDA-Public Use
  Company Number: US-GLAXOSMITHKLINE-A0622043A

PATIENT
  Age: 51 Year
  Sex: Female

DRUGS (6)
  1. COMMIT [Suspect]
  2. COMMIT [Suspect]
  3. LIPITOR [Concomitant]
  4. TRIAMTERENE [Concomitant]
  5. METOPROLOL SUCCINATE [Concomitant]
  6. LEVOXYL [Concomitant]

REACTIONS (3)
  - ASTHENIA [None]
  - INTENTIONAL DRUG MISUSE [None]
  - MALAISE [None]
